FAERS Safety Report 4327976-5 (Version None)
Quarter: 2004Q1

REPORT INFORMATION
  Report Type: 
  Country: None (occurrence: None)
  Receive Date: 20040325
  Receipt Date: 20040316
  Transmission Date: 20041129
  Serious: Yes (Death, Hospitalization)
  Sender: FDA-Public Use
  Company Number: 163-20785-04030125

PATIENT
  Age: 44 Year
  Sex: Female

DRUGS (3)
  1. THALOMID [Suspect]
     Indication: METASTASES TO CENTRAL NERVOUS SYSTEM
     Dosage: QD , ORAL
     Route: 048
     Dates: start: 20031201, end: 20031207
  2. RADIATION THERAPY [Concomitant]
  3. DILANTIN [Concomitant]

REACTIONS (3)
  - CONVULSION [None]
  - DISEASE PROGRESSION [None]
  - REFUSAL OF TREATMENT BY PATIENT [None]
